FAERS Safety Report 26165435 (Version 1)
Quarter: 2025Q4

REPORT INFORMATION
  Report Type: Spontaneous
  Country: US (occurrence: None)
  Receive Date: 20251216
  Receipt Date: 20251216
  Transmission Date: 20260118
  Serious: Yes (Hospitalization)
  Sender: FDA-CTU
  Company Number: None

PATIENT
  Sex: Female
  Weight: 92.7 kg

DRUGS (6)
  1. OPSUMIT [Suspect]
     Active Substance: MACITENTAN
     Indication: Pulmonary arterial hypertension
     Dosage: 10 MG DAILY ORAL
     Route: 048
     Dates: start: 20250818
  2. UPTRAVI [Concomitant]
     Active Substance: SELEXIPAG
  3. STERILE DILUENT FOR REMODULIN [Concomitant]
     Active Substance: WATER
  4. LIDOCAINE/PRILOCAINE CRM [Concomitant]
  5. TRIAMCINOLONE ACET CRM [Concomitant]
  6. REMODULIN [Suspect]
     Active Substance: TREPROSTINIL

REACTIONS (1)
  - Thrombosis [None]
